FAERS Safety Report 9071923 (Version 1)
Quarter: 2013Q1

REPORT INFORMATION
  Report Type: Spontaneous
  Country: IT (occurrence: IT)
  Receive Date: 20130129
  Receipt Date: 20130129
  Transmission Date: 20140127
  Serious: Yes (Hospitalization)
  Sender: FDA-Public Use
  Company Number: IT-ROCHE-1057560

PATIENT
  Age: 26 None
  Sex: Male

DRUGS (2)
  1. TORADOL [Suspect]
     Indication: TOOTHACHE
     Dosage: STRENGTH: 20 MG/ML
     Route: 048
     Dates: start: 20120327, end: 20120327
  2. AUGMENTIN [Concomitant]
     Route: 065
     Dates: start: 20120327, end: 20120327

REACTIONS (6)
  - Anaphylactic reaction [Recovered/Resolved]
  - Erythema [Recovered/Resolved]
  - Face oedema [Recovered/Resolved]
  - Tongue oedema [Recovered/Resolved]
  - Urticaria [Recovered/Resolved]
  - Pruritus generalised [Recovered/Resolved]
